FAERS Safety Report 12978814 (Version 2)
Quarter: 2017Q1

REPORT INFORMATION
  Report Type: Spontaneous
  Country: DE (occurrence: DE)
  Receive Date: 20161128
  Receipt Date: 20170331
  Transmission Date: 20170428
  Serious: Yes (Death, Life-Threatening)
  Sender: FDA-Public Use
  Company Number: DE-JNJFOC-20161113767

PATIENT
  Age: 65 Year
  Sex: Male

DRUGS (11)
  1. DIAZEPAM. [Concomitant]
     Active Substance: DIAZEPAM
     Route: 048
     Dates: start: 20150925, end: 20150926
  2. DIAZEPAM. [Concomitant]
     Active Substance: DIAZEPAM
     Route: 048
     Dates: start: 20150922, end: 20150924
  3. EUGLUCON N [Concomitant]
     Route: 048
     Dates: end: 20150926
  4. L THYROXIN [Concomitant]
     Active Substance: LEVOTHYROXINE SODIUM
     Route: 048
     Dates: end: 20160926
  5. HALDOL [Suspect]
     Active Substance: HALOPERIDOL
     Indication: PRODUCT USED FOR UNKNOWN INDICATION
     Route: 048
     Dates: start: 20150922, end: 20150926
  6. TIMONIL [Suspect]
     Active Substance: CARBAMAZEPINE
     Indication: PRODUCT USED FOR UNKNOWN INDICATION
     Route: 048
     Dates: start: 20150916, end: 20150926
  7. PERAZINE [Suspect]
     Active Substance: PERAZINE
     Indication: PRODUCT USED FOR UNKNOWN INDICATION
     Route: 048
     Dates: start: 20150916, end: 20150926
  8. TIMONIL [Suspect]
     Active Substance: CARBAMAZEPINE
     Indication: PRODUCT USED FOR UNKNOWN INDICATION
     Dosage: ALREADY BEFORE 2006
     Route: 048
  9. DIAZEPAM. [Concomitant]
     Active Substance: DIAZEPAM
     Route: 048
     Dates: start: 20150921
  10. PERAZINE [Suspect]
     Active Substance: PERAZINE
     Indication: PRODUCT USED FOR UNKNOWN INDICATION
     Dosage: ALREADY BEFORE 2006
     Route: 048
  11. CANDESARTAN [Concomitant]
     Active Substance: CANDESARTAN
     Route: 048
     Dates: end: 20150926

REACTIONS (3)
  - Drug ineffective [Unknown]
  - Cardiac arrest [Fatal]
  - Cardiac failure [Fatal]

NARRATIVE: CASE EVENT DATE: 20150926
